FAERS Safety Report 7533913-2 (Version None)
Quarter: 2011Q2

REPORT INFORMATION
  Report Type: 
  Country: None (occurrence: None)
  Receive Date: 20110608
  Receipt Date: 20060628
  Transmission Date: 20111010
  Serious: Yes (Hospitalization)
  Sender: FDA-Public Use
  Company Number: PHEH2006US08429

PATIENT
  Sex: Female

DRUGS (4)
  1. EXJADE [Suspect]
     Dosage: 500 MG, QD
     Route: 048
     Dates: start: 20060601
  2. LASIX [Concomitant]
     Dosage: UNK
  3. EXJADE [Suspect]
     Dosage: 1500 MG, QD
     Route: 048
     Dates: start: 20060607, end: 20060601
  4. LISINOPRIL [Concomitant]
     Dosage: UNK

REACTIONS (2)
  - DIARRHOEA [None]
  - DEHYDRATION [None]
